FAERS Safety Report 9340208 (Version 1)
Quarter: 2013Q2

REPORT INFORMATION
  Report Type: Spontaneous
  Country: US (occurrence: None)
  Receive Date: 20130610
  Receipt Date: 20130610
  Transmission Date: 20140414
  Serious: Yes (Hospitalization)
  Sender: FDA-Public Use
  Company Number: None

PATIENT
  Age: 59 Year
  Sex: Male
  Weight: 85.5 kg

DRUGS (2)
  1. ENOXAPARIN (GENERIC) [Suspect]
     Indication: DEEP VEIN THROMBOSIS
     Dosage: ML
     Route: 058
     Dates: start: 20130513
  2. ENOXAPARIN (GENERIC) [Suspect]
     Indication: OESOPHAGEAL CANCER METASTATIC
     Dosage: ML
     Route: 058
     Dates: start: 20130513

REACTIONS (5)
  - Cellulitis [None]
  - Haemorrhage intracranial [None]
  - Wound haemorrhage [None]
  - Necrotising fasciitis [None]
  - Klebsiella bacteraemia [None]
